FAERS Safety Report 6027170-6 (Version None)
Quarter: 2009Q1

REPORT INFORMATION
  Report Type: 
  Country: None (occurrence: None)
  Receive Date: 20090105
  Receipt Date: 20081224
  Transmission Date: 20090719
  Serious: Yes (Life-Threatening, Hospitalization, Disabling, Other)
  Sender: FDA-Public Use
  Company Number: CL-PFIZER INC-2008100061

PATIENT

DRUGS (29)
  1. LINEZOLID [Suspect]
     Route: 042
     Dates: start: 20081122, end: 20081126
  2. ANIDULAFUNGIN [Suspect]
     Indication: SYSTEMIC CANDIDA
     Dosage: 100 MG, 1X/DAY
     Dates: start: 20081121
  3. NIFEDIPINE [Concomitant]
     Route: 048
     Dates: start: 20081126, end: 20081127
  4. LEVOTHYROXINE [Concomitant]
     Route: 048
     Dates: start: 20081109, end: 20081124
  5. LOSARTAN [Concomitant]
     Route: 048
     Dates: start: 20081125, end: 20081127
  6. ATENOLOL [Concomitant]
     Route: 048
     Dates: start: 20081109, end: 20081110
  7. OMEPRAZOLE [Concomitant]
     Route: 048
     Dates: start: 20081110, end: 20081111
  8. KETOPROFEN [Concomitant]
     Route: 042
     Dates: start: 20081111, end: 20081117
  9. MORPHINE [Concomitant]
     Route: 042
     Dates: start: 20081111, end: 20081114
  10. CEFTRIAXONE [Concomitant]
     Route: 042
     Dates: start: 20081111, end: 20081117
  11. METRONIDAZOLE [Concomitant]
     Route: 042
     Dates: start: 20081111, end: 20081117
  12. ONDANSETRON [Concomitant]
     Route: 042
     Dates: start: 20081111, end: 20081117
  13. DALTEPARIN SODIUM [Concomitant]
     Route: 058
     Dates: start: 20081111, end: 20081122
  14. FAMOTIDINE [Concomitant]
     Route: 042
     Dates: start: 20081111, end: 20081124
  15. METOCLOPRAMIDE [Concomitant]
     Route: 042
     Dates: start: 20081112, end: 20081116
  16. LORAZEPAM [Concomitant]
     Route: 042
     Dates: start: 20081126, end: 20081126
  17. SULPERAZON [Concomitant]
     Route: 042
     Dates: start: 20081118, end: 20081118
  18. VANCOMYCIN [Concomitant]
     Route: 042
     Dates: start: 20081118, end: 20081121
  19. IMIPENEM [Concomitant]
     Route: 042
     Dates: start: 20081118, end: 20081121
  20. FLUCONAZOLE [Concomitant]
     Route: 042
     Dates: start: 20081119, end: 20081119
  21. METAMIZOLE [Concomitant]
     Route: 042
     Dates: start: 20081119, end: 20081122
  22. IPRATROPIUM BROMIDE [Concomitant]
     Route: 055
     Dates: start: 20081118, end: 20081127
  23. PIPERACILLIN AND TAZOBACTAM [Concomitant]
     Route: 042
     Dates: start: 20081121, end: 20081127
  24. NITROGLYCERIN [Concomitant]
     Route: 042
     Dates: start: 20081122, end: 20081123
  25. RISPERIDONE [Concomitant]
     Route: 048
     Dates: start: 20081122, end: 20081122
  26. PHENYTOIN [Concomitant]
     Route: 042
     Dates: start: 20081126, end: 20081127
  27. PHENYTOIN [Concomitant]
     Route: 048
  28. ALBUMIN (HUMAN) [Concomitant]
     Route: 042
     Dates: start: 20081123, end: 20081127
  29. TEICOPLANIN [Suspect]
     Dosage: UNK
     Dates: start: 20081126, end: 20081211

REACTIONS (3)
  - CONVULSION [None]
  - INTESTINAL PERFORATION [None]
  - RESPIRATORY FAILURE [None]
